FAERS Safety Report 19791125 (Version 2)
Quarter: 2021Q3

REPORT INFORMATION
  Report Type: Report from Study
  Country: US (occurrence: US)
  Receive Date: 20210906
  Receipt Date: 20210914
  Transmission Date: 20211014
  Serious: No
  Sender: FDA-Public Use
  Company Number: US-SA-2021SA292523

PATIENT
  Sex: Female

DRUGS (14)
  1. FUROSEMIDE. [Concomitant]
     Active Substance: FUROSEMIDE
     Dosage: 80 MG
  2. NALTREXONE HCL [Concomitant]
     Active Substance: NALTREXONE HYDROCHLORIDE
     Dosage: 50 MG
  3. DUPIXENT [Suspect]
     Active Substance: DUPILUMAB
     Dosage: 300 MG, QOW
     Route: 058
     Dates: start: 20210806
  4. DILTIAZEM HCL [Concomitant]
     Active Substance: DILTIAZEM HYDROCHLORIDE
     Dosage: 360 MG
  5. ROSUVASTATIN. [Concomitant]
     Active Substance: ROSUVASTATIN
     Dosage: 10 MG
  6. LEVOTHYROXIN [Concomitant]
     Active Substance: LEVOTHYROXINE
     Dosage: 175 UG
  7. ASPIR LOW [Concomitant]
     Active Substance: ASPIRIN
     Dosage: 81 MG
  8. ALBUTEROL SULFATE. [Concomitant]
     Active Substance: ALBUTEROL SULFATE
  9. OMEPRAZOLE. [Concomitant]
     Active Substance: OMEPRAZOLE
     Dosage: 40 MG
  10. DUPIXENT [Suspect]
     Active Substance: DUPILUMAB
     Indication: ASTHMA
     Dosage: 600 MG, 1X
     Route: 058
     Dates: start: 20210723
  11. CYMBALTA [Concomitant]
     Active Substance: DULOXETINE HYDROCHLORIDE
     Dosage: 60 MG
  12. HUMIRA [Concomitant]
     Active Substance: ADALIMUMAB
     Dosage: 40MG/0.8ML
  13. MONTELUKAST [Concomitant]
     Active Substance: MONTELUKAST SODIUM
     Dosage: 10 MG
  14. POTASSIUM [Concomitant]
     Active Substance: POTASSIUM
     Dosage: 10 MEQ

REACTIONS (3)
  - Product use issue [Unknown]
  - Cough [Unknown]
  - Wheezing [Unknown]
